FAERS Safety Report 9708562 (Version 1)
Quarter: 2013Q4

REPORT INFORMATION
  Report Type: Spontaneous
  Country: DK (occurrence: SE)
  Receive Date: 20131125
  Receipt Date: 20131125
  Transmission Date: 20140711
  Serious: Yes (Other)
  Sender: FDA-Public Use
  Company Number: SE-FRI-1000051648

PATIENT
  Sex: Female

DRUGS (1)
  1. CITALOPRAM [Suspect]
     Indication: DEPRESSION

REACTIONS (2)
  - Epilepsy [Unknown]
  - Urinary incontinence [Unknown]
